FAERS Safety Report 24327329 (Version 1)
Quarter: 2024Q3

REPORT INFORMATION
  Report Type: Report from Study
  Country: CO (occurrence: CO)
  Receive Date: 20240917
  Receipt Date: 20240917
  Transmission Date: 20241016
  Serious: Yes (Other)
  Sender: REGENERON
  Company Number: CO-BAYER-2024A093347

PATIENT
  Age: 55 Year
  Sex: Male

DRUGS (6)
  1. EYLEA [Suspect]
     Active Substance: AFLIBERCEPT
     Indication: Diabetic retinal oedema
     Dosage: 2 MG, RIGHT EYE, 40MG/ML
     Dates: start: 20231215, end: 20231215
  2. EYLEA [Suspect]
     Active Substance: AFLIBERCEPT
     Dosage: 2 MG, RIGHT EYE, 40MG/ML
     Dates: start: 20240119, end: 20240119
  3. EYLEA [Suspect]
     Active Substance: AFLIBERCEPT
     Dosage: 2 MG, RIGHT EYE, 40MG/ML
     Dates: start: 20240221, end: 20240221
  4. EYLEA [Suspect]
     Active Substance: AFLIBERCEPT
     Dosage: 2 MG, 40MG/ML
     Dates: start: 20240324, end: 20240324
  5. EYLEA [Suspect]
     Active Substance: AFLIBERCEPT
     Dosage: 2 MG, RIGHT EYE, 40MG/ML
     Dates: start: 20240719, end: 20240719
  6. EYLEA [Suspect]
     Active Substance: AFLIBERCEPT
     Dosage: 2 MG, RIGHT EYE, 40MG/ML
     Dates: start: 20240911

REACTIONS (3)
  - Cataract operation [Unknown]
  - Tenon^s cyst [Unknown]
  - Inappropriate schedule of product administration [Not Recovered/Not Resolved]

NARRATIVE: CASE EVENT DATE: 20240430
